FAERS Safety Report 6919810-1 (Version None)
Quarter: 2010Q3

REPORT INFORMATION
  Report Type: 
  Country: None (occurrence: None)
  Receive Date: 20100810
  Receipt Date: 20100810
  Transmission Date: 20110219
  Serious: Yes (Other)
  Sender: FDA-Public Use
  Company Number: None

PATIENT
  Age: 36 Year
  Sex: Female
  Weight: 106.1417 kg

DRUGS (2)
  1. SEROQUEL [Suspect]
     Indication: BIPOLAR DISORDER
     Dosage: PO
     Route: 048
     Dates: start: 19970810, end: 20050415
  2. ZYPREXA [Suspect]
     Indication: BIPOLAR DISORDER
     Dates: start: 19970810, end: 20020401

REACTIONS (1)
  - UNEVALUABLE EVENT [None]
